FAERS Safety Report 6944896-8 (Version None)
Quarter: 2010Q3

REPORT INFORMATION
  Report Type: 
  Country: None (occurrence: None)
  Receive Date: 20100827
  Receipt Date: 20100818
  Transmission Date: 20110219
  Serious: Yes (Death)
  Sender: FDA-Public Use
  Company Number: US-MPIJNJ-2010-04384

PATIENT
  Sex: Female

DRUGS (5)
  1. VELCADE [Suspect]
     Indication: LUNG NEOPLASM MALIGNANT
  2. DOXIL                              /00330902/ [Suspect]
     Indication: LUNG NEOPLASM MALIGNANT
  3. GEMZAR [Suspect]
     Indication: LUNG NEOPLASM MALIGNANT
  4. TOPOTECAN [Suspect]
     Indication: LUNG NEOPLASM MALIGNANT
  5. CISPLATIN [Suspect]
     Indication: LUNG NEOPLASM MALIGNANT

REACTIONS (1)
  - DEATH [None]
